FAERS Safety Report 17050295 (Version 1)
Quarter: 2019Q4

REPORT INFORMATION
  Report Type: Spontaneous
  Country: TR (occurrence: TR)
  Receive Date: 20191119
  Receipt Date: 20191119
  Transmission Date: 20200122
  Serious: Yes (Other)
  Sender: FDA-Public Use
  Company Number: TR-PFIZER INC-2019493616

PATIENT

DRUGS (1)
  1. TOFACITINIB CITRATE [Suspect]
     Active Substance: TOFACITINIB CITRATE
     Indication: RHEUMATOID ARTHRITIS
     Dosage: UNK

REACTIONS (14)
  - Myocardial infarction [Unknown]
  - Vaginal infection [Unknown]
  - Proteinuria [Unknown]
  - Endometrial adenocarcinoma [Unknown]
  - Herpes simplex [Unknown]
  - Rash [Unknown]
  - Herpes zoster [Unknown]
  - Pulmonary embolism [Unknown]
  - Deep vein thrombosis [Unknown]
  - Condition aggravated [Unknown]
  - Nausea [Unknown]
  - Right ventricular failure [Unknown]
  - Leukopenia [Unknown]
  - Cough [Unknown]
